FAERS Safety Report 6584895-1 (Version None)
Quarter: 2010Q1

REPORT INFORMATION
  Report Type: 
  Country: None (occurrence: None)
  Receive Date: 20100204
  Receipt Date: 20100102
  Transmission Date: 20100710
  Serious: Yes (Other)
  Sender: FDA-Public Use
  Company Number: 430010J10USA

PATIENT
  Age: 56 Year
  Sex: Male

DRUGS (4)
  1. NOVANTRONE [Suspect]
     Indication: MULTIPLE SCLEROSIS
     Dosage: 1 IN 3 MONTHS, INTRAVENOUS (NOT OTHERWISE SPECIFIED)
     Route: 042
     Dates: start: 20090501
  2. BLOOD PRESSURE MEDICATION (ANTIHYPERTENSIVES) [Concomitant]
  3. CHOLESTEROL MEDICATION (CHOLESTEROL- AND TRIGLYCERIDE REDUCERS) [Concomitant]
  4. UNSPECIFIED MEDICATIONS (ALL OTHER THERAPEUTIC PRODUCTS) [Concomitant]

REACTIONS (16)
  - CONDITION AGGRAVATED [None]
  - INCONTINENCE [None]
  - INJECTION SITE DISCOLOURATION [None]
  - INJECTION SITE ERYTHEMA [None]
  - INJECTION SITE EXTRAVASATION [None]
  - INJECTION SITE INDURATION [None]
  - INJECTION SITE INFECTION [None]
  - INJECTION SITE PUSTULE [None]
  - INJECTION SITE REACTION [None]
  - INJECTION SITE SCAB [None]
  - INJECTION SITE SWELLING [None]
  - INJECTION SITE WARMTH [None]
  - MULTIPLE SCLEROSIS [None]
  - POOR PERIPHERAL CIRCULATION [None]
  - WOUND COMPLICATION [None]
  - WOUND INFECTION [None]
